FAERS Safety Report 19161261 (Version 3)
Quarter: 2021Q2

REPORT INFORMATION
  Report Type: Spontaneous
  Country: DE (occurrence: DE)
  Receive Date: 20210421
  Receipt Date: 20210524
  Transmission Date: 20210717
  Serious: Yes (Hospitalization, Disabling, Other)
  Sender: FDA-Public Use
  Company Number: DE-SUN PHARMACEUTICAL INDUSTRIES LTD-2021RR-291655

PATIENT
  Age: 38 Year
  Sex: Male
  Weight: 80 kg

DRUGS (6)
  1. ROSUVASTATIN 5MG [Concomitant]
     Active Substance: ROSUVASTATIN
     Indication: PRODUCT USED FOR UNKNOWN INDICATION
     Dosage: 5 MILLIGRAM, DAILY, 0?0?1
     Route: 065
  2. AMITRIPTYLIN ? CT 25MG TABLETTEN [Concomitant]
     Indication: NEURALGIA
     Dosage: 0.5 DOSAGE FORM, DAILY, 25 MG 0?0?0?1/2
     Route: 065
  3. QUETIAPIN?NEURAX 25 MG FILMTABLETTEN [Concomitant]
     Indication: PRODUCT USED FOR UNKNOWN INDICATION
     Dosage: 25 MILLIGRAM, DAILY, 0?0?0?1
     Route: 065
  4. CIPROFLOXACIN. [Suspect]
     Active Substance: CIPROFLOXACIN
     Indication: PROSTATITIS
     Dosage: 500 MILLIGRAM, DAILY, 2 X250MG
     Route: 048
     Dates: start: 20200715, end: 20200719
  5. RAMIPRIL HEXAL 2,5 MG [Concomitant]
     Indication: PRODUCT USED FOR UNKNOWN INDICATION
     Dosage: 5 MILLIGRAM, DAILY, 2.5 MG 1?0?1?0
     Route: 065
  6. BETAMETHASON [Concomitant]
     Active Substance: BETAMETHASONE
     Indication: PRODUCT USED FOR UNKNOWN INDICATION
     Dosage: UNKNOWN
     Route: 065

REACTIONS (9)
  - Pain in extremity [Unknown]
  - Pain [Recovered/Resolved with Sequelae]
  - Haematochezia [Unknown]
  - Neuralgia [Recovered/Resolved with Sequelae]
  - Myalgia [Recovered/Resolved with Sequelae]
  - Penile pain [Unknown]
  - Abdominal discomfort [Unknown]
  - Pain in extremity [Recovered/Resolved with Sequelae]
  - Arthralgia [Unknown]

NARRATIVE: CASE EVENT DATE: 2020
